FAERS Safety Report 7336013-X (Version None)
Quarter: 2011Q1

REPORT INFORMATION
  Report Type: 
  Country: None (occurrence: None)
  Receive Date: 20110228
  Receipt Date: 20110217
  Transmission Date: 20110831
  Serious: Yes (Other)
  Sender: FDA-Public Use
  Company Number: 2011000524

PATIENT
  Age: 72 Year
  Sex: Female
  Weight: 95.2554 kg

DRUGS (6)
  1. TARCEVA [Suspect]
     Indication: NON-SMALL CELL LUNG CANCER
     Dosage: 150 MG, DAILY, ORAL
     Route: 048
     Dates: start: 20101226, end: 20110121
  2. MIRACLE MOUTHWASH [Concomitant]
  3. VERAPAMIL [Concomitant]
  4. GLUCOPHAGE [Concomitant]
  5. TOPROL-XL [Concomitant]
  6. COUMADIN [Concomitant]

REACTIONS (7)
  - SKIN EXFOLIATION [None]
  - DIARRHOEA [None]
  - CORNEAL DISORDER [None]
  - TRICHIASIS [None]
  - EYE IRRITATION [None]
  - RASH [None]
  - STOMATITIS [None]
